FAERS Safety Report 18704281 (Version 4)
Quarter: 2021Q1

REPORT INFORMATION
  Report Type: Spontaneous
  Country: US (occurrence: US)
  Receive Date: 20210106
  Receipt Date: 20210323
  Transmission Date: 20210419
  Serious: No
  Sender: FDA-Public Use
  Company Number: US-JNJFOC-20201237616

PATIENT
  Age: 48 Year
  Sex: Male
  Weight: 73.55 kg

DRUGS (2)
  1. MENS ROGAINE EXTRA STRENGTH [Suspect]
     Active Substance: MINOXIDIL
     Route: 061
     Dates: start: 202012, end: 202012
  2. MENS ROGAINE EXTRA STRENGTH [Suspect]
     Active Substance: MINOXIDIL
     Indication: ALOPECIA
     Route: 061
     Dates: start: 202003, end: 202006

REACTIONS (4)
  - Alopecia [Unknown]
  - Product physical issue [Unknown]
  - Poor quality product administered [Unknown]
  - Drug ineffective [Unknown]
